FAERS Safety Report 4796858-7 (Version None)
Quarter: 2005Q4

REPORT INFORMATION
  Report Type: 
  Country: None (occurrence: None)
  Receive Date: 20051011
  Receipt Date: 20051011
  Transmission Date: 20060501
  Serious: Yes (Hospitalization)
  Sender: FDA-Public Use
  Company Number: None

PATIENT
  Age: 70 Year
  Sex: Male
  Weight: 115 kg

DRUGS (10)
  1. GEMFIBROZIL [Suspect]
     Indication: HYPERLIPIDAEMIA
     Dosage: 600 MG    TWICE DAILY   PO
     Route: 048
     Dates: start: 20040601, end: 20050601
  2. ATORVASTATIN [Suspect]
     Indication: HYPERLIPIDAEMIA
     Dosage: 20 MG   DAILY   PO
     Route: 048
     Dates: start: 20040601, end: 20050601
  3. MULTI-VITAMIN [Concomitant]
  4. ASPIRIN [Concomitant]
  5. METFORMIN [Concomitant]
  6. LISINOPRIL [Concomitant]
  7. DILTIAZEM HCL [Concomitant]
  8. OXYCONTIN [Concomitant]
  9. FUROSEMIDE [Concomitant]
  10. UROCIT-K [Concomitant]

REACTIONS (10)
  - ACCIDENT AT HOME [None]
  - DIFFICULTY IN WALKING [None]
  - DRUG INTERACTION [None]
  - DYSSTASIA [None]
  - ELECTROCARDIOGRAM T WAVE PEAKED [None]
  - FALL [None]
  - ORAL INTAKE REDUCED [None]
  - RENAL FAILURE ACUTE [None]
  - RENAL FAILURE CHRONIC [None]
  - RHABDOMYOLYSIS [None]
